FAERS Safety Report 19269950 (Version 2)
Quarter: 2021Q2

REPORT INFORMATION
  Report Type: Report from Study
  Country: US (occurrence: US)
  Receive Date: 20210518
  Receipt Date: 20210616
  Transmission Date: 20210717
  Serious: Yes (Other)
  Sender: FDA-Public Use
  Company Number: US-UCBSA-2021022208

PATIENT
  Age: 74 Year
  Sex: Female
  Weight: 77 kg

DRUGS (5)
  1. RYTARY [Concomitant]
     Active Substance: CARBIDOPA\LEVODOPA
     Indication: PARKINSON^S DISEASE
     Dosage: 2 DOSAGE FORM, 3X/DAY (TID)
     Route: 048
     Dates: start: 202001
  2. ROTIGOTINE [Suspect]
     Active Substance: ROTIGOTINE
     Indication: PARKINSON^S DISEASE
     Dosage: 4 MILLIGRAM, ONCE DAILY (QD)
     Route: 062
     Dates: start: 202001, end: 202104
  3. VITAMIN B12 [VITAMIN B12 NOS] [Concomitant]
     Active Substance: CYANOCOBALAMIN
     Indication: ANAEMIA VITAMIN B12 DEFICIENCY
     Dosage: ONE SHOT ONCE A MONTH
  4. ROTIGOTINE [Suspect]
     Active Substance: ROTIGOTINE
     Dosage: CUTTING HER 4MG PATCHES IN HALF, ONCE DAILY (QD)
     Route: 062
     Dates: start: 202104, end: 202104
  5. EUTHYROX [Concomitant]
     Active Substance: LEVOTHYROXINE SODIUM
     Indication: HYPOTHYROIDISM
     Dosage: 100 MICROGRAM, ONCE DAILY (QD)
     Route: 048

REACTIONS (3)
  - Post procedural complication [Not Recovered/Not Resolved]
  - Haematoma [Recovered/Resolved]
  - Wrong technique in product usage process [Unknown]

NARRATIVE: CASE EVENT DATE: 2021
